FAERS Safety Report 6086295-X (Version None)
Quarter: 2009Q1

REPORT INFORMATION
  Report Type: 
  Country: None (occurrence: None)
  Receive Date: 20090220
  Receipt Date: 20090219
  Transmission Date: 20090719
  Serious: Yes (Hospitalization)
  Sender: FDA-Public Use
  Company Number: US-B.I. PHARMACEUTICALS,INC./RIDGEFIELD-2008-BP-19169BP

PATIENT
  Sex: Male

DRUGS (8)
  1. SPIRIVA [Suspect]
     Indication: CHRONIC OBSTRUCTIVE PULMONARY DISEASE
     Dosage: 18MCG
     Route: 055
     Dates: start: 20050101
  2. SPIRIVA [Suspect]
     Indication: EMPHYSEMA
  3. SPIRIVA [Suspect]
     Indication: LUNG LOBECTOMY
  4. ASPIRIN [Concomitant]
     Dosage: 81MG
  5. LOPRESSOR [Concomitant]
     Indication: HYPERTENSION
     Dosage: 50MG
  6. LOPRESSOR [Concomitant]
     Indication: HEART RATE IRREGULAR
  7. PRAVACHOL [Concomitant]
     Indication: BLOOD CHOLESTEROL INCREASED
     Dosage: 40MG
  8. AMLODIPINE [Concomitant]
     Indication: CARDIAC DISORDER
     Dosage: 2.5MG

REACTIONS (4)
  - ANEURYSM [None]
  - BACK PAIN [None]
  - DRY MOUTH [None]
  - OESOPHAGEAL DISORDER [None]
